FAERS Safety Report 13801553 (Version 1)
Quarter: 2017Q3

REPORT INFORMATION
  Report Type: Spontaneous
  Country: GB (occurrence: GB)
  Receive Date: 20170727
  Receipt Date: 20170727
  Transmission Date: 20171127
  Serious: Yes (Hospitalization)
  Sender: FDA-Public Use
  Company Number: GB-FERRINGPH-2017FE03633

PATIENT

DRUGS (4)
  1. PICOLAX (MAGNESIUM CITRATE/SODIUM PICOSULFATE) [Suspect]
     Active Substance: MAGNESIUM CITRATE\SODIUM PICOSULFATE
     Indication: BOWEL PREPARATION
     Route: 065
     Dates: start: 20170714
  2. BUSCOPAN [Suspect]
     Active Substance: BUTYLSCOPOLAMINE BROMIDE
     Indication: COMPUTERISED TOMOGRAM INTESTINE
     Dosage: 20MG/1ML
     Route: 042
     Dates: start: 20170714, end: 20170714
  3. CARBON DIOXIDE. [Suspect]
     Active Substance: CARBON DIOXIDE
     Indication: PRODUCT USED FOR UNKNOWN INDICATION
     Dosage: 4 L
     Route: 054
     Dates: start: 20170714
  4. NIOPAM [Suspect]
     Active Substance: IOPAMIDOL
     Indication: COMPUTERISED TOMOGRAM INTESTINE
     Dosage: 300
     Route: 042
     Dates: start: 20170714, end: 20170714

REACTIONS (4)
  - Neck pain [Recovered/Resolved]
  - Retching [Recovered/Resolved]
  - Erythema [Recovered/Resolved]
  - Nausea [Recovered/Resolved]

NARRATIVE: CASE EVENT DATE: 20170714
